FAERS Safety Report 6584484-9 (Version None)
Quarter: 2010Q1

REPORT INFORMATION
  Report Type: 
  Country: None (occurrence: None)
  Receive Date: 20100213
  Receipt Date: 20100213
  Transmission Date: 20100710
  Serious: Yes (Hospitalization, Other)
  Sender: FDA-Public Use
  Company Number: None

PATIENT
  Age: 34 Year
  Sex: Female
  Weight: 101.6057 kg

DRUGS (2)
  1. BUPROPION HCL [Suspect]
     Indication: DEPRESSION
     Dosage: 150 MG DAILY PO
     Route: 048
     Dates: start: 20100114, end: 20100129
  2. BUPROPION HCL [Suspect]
     Indication: SEASONAL AFFECTIVE DISORDER
     Dosage: 150 MG DAILY PO
     Route: 048
     Dates: start: 20100114, end: 20100129

REACTIONS (2)
  - DIZZINESS [None]
  - HYPERSENSITIVITY [None]
